FAERS Safety Report 9748462 (Version 1)
Quarter: 2013Q4

REPORT INFORMATION
  Report Type: Spontaneous
  Country: US (occurrence: None)
  Receive Date: 20131209
  Receipt Date: 20131209
  Transmission Date: 20140711
  Serious: Yes (Other)
  Sender: FDA-Public Use
  Company Number: 2013P1021504

PATIENT
  Age: 41 Year
  Sex: Female

DRUGS (1)
  1. PHENERGAN [Suspect]
     Indication: NAUSEA
     Route: 030
     Dates: start: 20130817, end: 20130817

REACTIONS (4)
  - Injection site reaction [None]
  - Injection site rash [None]
  - Dyspnoea [None]
  - Rash generalised [None]
